FAERS Safety Report 5142197-4 (Version None)
Quarter: 2006Q4

REPORT INFORMATION
  Report Type: 
  Country: None (occurrence: None)
  Receive Date: 20061102
  Receipt Date: 20061020
  Transmission Date: 20070319
  Serious: Yes (Other)
  Sender: FDA-Public Use
  Company Number: JP-JNJFOC-20061005125

PATIENT
  Age: 81 Year
  Sex: Male

DRUGS (1)
  1. DUROTEP PATCH [Suspect]
     Indication: CANCER PAIN
     Route: 062
     Dates: start: 20061009, end: 20061011

REACTIONS (4)
  - CONVULSION [None]
  - DEMENTIA [None]
  - DYSARTHRIA [None]
  - MUSCLE RIGIDITY [None]
